FAERS Safety Report 13929881 (Version 1)
Quarter: 2017Q3

REPORT INFORMATION
  Report Type: Spontaneous
  Country: US (occurrence: US)
  Receive Date: 20170901
  Receipt Date: 20170901
  Transmission Date: 20171127
  Serious: No
  Sender: FDA-Public Use
  Company Number: US-009507513-1709USA000341

PATIENT
  Age: 34 Year
  Sex: Female

DRUGS (1)
  1. INTRON A [Suspect]
     Active Substance: INTERFERON ALFA-2B
     Indication: MYELOFIBROSIS
     Dosage: 3 MILLION UNITS 5 DAYS/WEEK
     Route: 058
     Dates: start: 20140418

REACTIONS (2)
  - Drug dose omission [Unknown]
  - Blood count abnormal [Unknown]

NARRATIVE: CASE EVENT DATE: 201708
